FAERS Safety Report 7453372-8 (Version None)
Quarter: 2011Q2

REPORT INFORMATION
  Report Type: 
  Country: None (occurrence: None)
  Receive Date: 20110502
  Receipt Date: 20110427
  Transmission Date: 20111010
  Serious: Yes (Hospitalization)
  Sender: FDA-Public Use
  Company Number: CHPA2011US06038

PATIENT
  Age: 88 Year
  Sex: Female
  Weight: 74.83 kg

DRUGS (1)
  1. SLOW FE BROWN [Suspect]
     Indication: MINERAL SUPPLEMENTATION
     Dosage: UNK , UNK
     Route: 048
     Dates: start: 20110301

REACTIONS (2)
  - FAECES DISCOLOURED [None]
  - THROMBOSIS [None]
